FAERS Safety Report 4565231-9 (Version None)
Quarter: 2005Q1

REPORT INFORMATION
  Report Type: 
  Country: None (occurrence: None)
  Receive Date: 20050127
  Receipt Date: 20050127
  Transmission Date: 20050727
  Serious: No
  Sender: FDA-Public Use
  Company Number: None

PATIENT
  Age: 45 Year
  Sex: Male
  Weight: 80.7 kg

DRUGS (11)
  1. HALOPERIDOL [Suspect]
     Indication: AGITATION
     Dosage: 25 MG, 5 MG Q4 H , ORAL
     Route: 048
  2. HALOPERIDOL [Suspect]
     Indication: PSYCHOTIC DISORDER
     Dosage: 25 MG, 5 MG Q4 H , ORAL
     Route: 048
  3. BENZTROPINE MESYLATE [Concomitant]
  4. ATENOLOL [Concomitant]
  5. ALPRAZOLAM [Concomitant]
  6. ACETAMINOPHEN [Concomitant]
  7. NAPROXEN [Concomitant]
  8. MAGNESIUM HYDROXIDE TAB [Concomitant]
  9. KAOLIN/PECTIN [Concomitant]
  10. ALOH/MGOH/SIMETH XTRA STRENGTH [Concomitant]
  11. HALOPERIDOL [Concomitant]

REACTIONS (1)
  - DYSTONIA [None]
